FAERS Safety Report 10165092 (Version 2)
Quarter: 2014Q2

REPORT INFORMATION
  Report Type: Spontaneous
  Country: US (occurrence: US)
  Receive Date: 20140510
  Receipt Date: 20140510
  Transmission Date: 20141212
  Serious: No
  Sender: FDA-Public Use
  Company Number: US-BRISTOL-MYERS SQUIBB COMPANY-19721562

PATIENT
  Age: 52 Year
  Sex: Male
  Weight: 108.84 kg

DRUGS (3)
  1. BYDUREON [Suspect]
     Indication: TYPE 2 DIABETES MELLITUS
     Route: 058
  2. ALTACE [Suspect]
  3. METFORMIN HCL [Concomitant]

REACTIONS (10)
  - Headache [Recovered/Resolved]
  - Pain [Unknown]
  - Pruritus [Unknown]
  - Pyrexia [Unknown]
  - Injection site mass [Unknown]
  - Constipation [Unknown]
  - Diarrhoea [Unknown]
  - Nausea [Unknown]
  - Back pain [Unknown]
  - Glycosylated haemoglobin increased [Unknown]
